FAERS Safety Report 13055825 (Version 2)
Quarter: 2017Q1

REPORT INFORMATION
  Report Type: Spontaneous
  Country: US (occurrence: US)
  Receive Date: 20161222
  Receipt Date: 20170113
  Transmission Date: 20170428
  Serious: Yes (Other)
  Sender: FDA-Public Use
  Company Number: US-SAOL THERAPEUTICS-2016SAO01279

PATIENT
  Sex: Female

DRUGS (5)
  1. BACLOFEN. [Suspect]
     Active Substance: BACLOFEN
     Indication: POST LAMINECTOMY SYNDROME
  2. BACLOFEN. [Suspect]
     Active Substance: BACLOFEN
     Indication: PAIN
  3. BACLOFEN. [Suspect]
     Active Substance: BACLOFEN
     Indication: SPINAL PAIN
  4. MORPHINE [Suspect]
     Active Substance: MORPHINE
     Dosage: 9.027 MG, \DAY
  5. MORPHINE [Suspect]
     Active Substance: MORPHINE
     Dosage: 9.15 ?G, \DAY
     Route: 037
     Dates: start: 1999

REACTIONS (14)
  - Therapeutic product ineffective for unapproved indication [Unknown]
  - Implant site pain [Unknown]
  - Back pain [Unknown]
  - Off label use [Unknown]
  - Sneezing [Unknown]
  - Renal disorder [Unknown]
  - Gastric ulcer haemorrhage [Unknown]
  - Fall [Unknown]
  - Memory impairment [Unknown]
  - Sensory disturbance [Unknown]
  - Complication associated with device [Unknown]
  - Nephrolithiasis [Unknown]
  - Haematemesis [Unknown]
  - Gastrooesophageal reflux disease [Unknown]

NARRATIVE: CASE EVENT DATE: 2012
